FAERS Safety Report 6755385-8 (Version None)
Quarter: 2010Q2

REPORT INFORMATION
  Report Type: 
  Country: None (occurrence: None)
  Receive Date: 20100604
  Receipt Date: 20100525
  Transmission Date: 20101027
  Serious: Yes (Other)
  Sender: FDA-Public Use
  Company Number: US-PFIZER INC-2010066199

PATIENT

DRUGS (2)
  1. CHANTIX [Suspect]
     Dosage: UNK
  2. ZYPREXA [Suspect]
     Dosage: UNK

REACTIONS (1)
  - PSYCHIATRIC DECOMPENSATION [None]
